FAERS Safety Report 5928549-0 (Version None)
Quarter: 2008Q4

REPORT INFORMATION
  Report Type: 
  Country: None (occurrence: None)
  Receive Date: 20081023
  Receipt Date: 20081014
  Transmission Date: 20090506
  Serious: Yes (Hospitalization)
  Sender: FDA-Public Use
  Company Number: US-WATSON-2008-06125

PATIENT
  Age: 22 Year
  Sex: Male

DRUGS (3)
  1. TOBRAMYCIN SULFATE [Suspect]
     Indication: CYSTIC FIBROSIS
     Dosage: 560 MG, DAILY
     Route: 042
  2. PIPERACILLIN SODIUM AND TAZOBACTAM SODIUM [Suspect]
     Indication: CYSTIC FIBROSIS
     Dosage: 4.5 G, Q6H
     Route: 042
  3. VANCOMYCIN [Suspect]
     Indication: CYSTIC FIBROSIS
     Dosage: 1 G, Q8H

REACTIONS (1)
  - NEURALGIC AMYOTROPHY [None]
